FAERS Safety Report 20575305 (Version 1)
Quarter: 2022Q1

REPORT INFORMATION
  Report Type: Spontaneous
  Country: US (occurrence: US)
  Receive Date: 20220310
  Receipt Date: 20220310
  Transmission Date: 20220424
  Serious: Yes (Hospitalization)
  Sender: FDA-Public Use
  Company Number: US-NOVOPROD-897672

PATIENT
  Age: 81 Year
  Sex: Female

DRUGS (2)
  1. LEVEMIR [Suspect]
     Active Substance: INSULIN DETEMIR
     Dosage: DOSE DECREASED
     Route: 058
  2. LEVEMIR [Suspect]
     Active Substance: INSULIN DETEMIR
     Indication: Type 2 diabetes mellitus
     Dosage: 32 IU, QD (16 UNITS TWICE DAILY)
     Route: 058

REACTIONS (6)
  - Cerebrovascular accident [Unknown]
  - Atrial fibrillation [Unknown]
  - Stress [Unknown]
  - Asthma exercise induced [Unknown]
  - Dry mouth [Unknown]
  - Blood glucose fluctuation [Unknown]

NARRATIVE: CASE EVENT DATE: 20220204
